FAERS Safety Report 6189161-4 (Version None)
Quarter: 2009Q2

REPORT INFORMATION
  Report Type: 
  Country: None (occurrence: None)
  Receive Date: 20090513
  Receipt Date: 20090325
  Transmission Date: 20091009
  Serious: No
  Sender: FDA-Public Use
  Company Number: A0775338A

PATIENT
  Sex: Male

DRUGS (3)
  1. TREXIMET [Suspect]
     Indication: MIGRAINE
     Dosage: 1TAB AS REQUIRED
     Route: 048
     Dates: start: 20090901
  2. IMITREX [Suspect]
     Indication: MIGRAINE
     Route: 048
     Dates: start: 20040101, end: 20040101
  3. OXYCODONE HCL [Concomitant]

REACTIONS (4)
  - AURA [None]
  - DRUG INEFFECTIVE [None]
  - HAIR DISORDER [None]
  - SENSORY DISTURBANCE [None]
